FAERS Safety Report 18987664 (Version 4)
Quarter: 2021Q1

REPORT INFORMATION
  Report Type: Spontaneous
  Country: GB (occurrence: GB)
  Receive Date: 20210309
  Receipt Date: 20210320
  Transmission Date: 20210420
  Serious: Yes (Death, Life-Threatening, Hospitalization)
  Sender: FDA-Public Use
  Company Number: GB-ORGANON-1811GBR001734

PATIENT
  Age: 47 Year
  Sex: Female

DRUGS (11)
  1. EZETIMIBE. [Suspect]
     Active Substance: EZETIMIBE
     Indication: BLOOD CHOLESTEROL INCREASED
     Dosage: 10 MILLIGRAM, QD, (10 MG, QD)
     Route: 048
     Dates: end: 20180928
  2. PRAVASTATIN. [Suspect]
     Active Substance: PRAVASTATIN
     Dosage: 40 MILLIGRAM, QD (40 MG, PM, QHS, UNIT DOSE: 40 MG)
     Route: 048
  3. FELODIPINE. [Suspect]
     Active Substance: FELODIPINE
     Indication: HYPERTENSION
     Dosage: 10 MILLIGRAM, QD, (10 MG QD)
     Route: 048
     Dates: end: 20180928
  4. SERTRALINE HYDROCHLORIDE. [Suspect]
     Active Substance: SERTRALINE HYDROCHLORIDE
     Indication: DEPRESSION
     Dosage: 50 MILLIGRAM, QD, (50 MG, QD, AM)
     Route: 048
     Dates: start: 201709, end: 20180928
  5. HUMALOG MIX [Suspect]
     Active Substance: INSULIN LISPRO
     Dosage: 120 IU, TID (360 INTERNATIONAL UNIT, QD)
     Route: 048
     Dates: end: 20180928
  6. HUMALOG MIX [Suspect]
     Active Substance: INSULIN LISPRO
     Dosage: 120 IU, TID (360 INTERNATIONAL UNIT, QD)
     Route: 048
     Dates: end: 20180928
  7. CLOZARIL [Suspect]
     Active Substance: CLOZAPINE
     Indication: SCHIZOPHRENIA
     Dosage: 200 MILLIGRAM, QD, (200 MG, PM, 1 DAY)
     Route: 048
     Dates: start: 20170317, end: 20180928
  8. LANSOPRAZOLE. [Suspect]
     Active Substance: LANSOPRAZOLE
     Indication: GASTROOESOPHAGEAL REFLUX DISEASE
     Dosage: 30 MILLIGRAM DAILY; 30 MG, AM, QD
     Route: 065
     Dates: end: 20180928
  9. LOSARTAN POTASSIUM. [Suspect]
     Active Substance: LOSARTAN POTASSIUM
     Indication: HYPERTENSION
     Dosage: 100 MILLIGRAM, QD, (100 MG QD) (FORMULATION REPORTED AS FILM?COATED TABLET)
     Route: 048
     Dates: end: 20180928
  10. HUMALOG MIX [Suspect]
     Active Substance: INSULIN LISPRO
     Indication: DIABETES MELLITUS
     Dosage: 60 IU, TID (180 INTERNATIONAL UNIT, QD)
     Route: 048
     Dates: end: 20180928
  11. PRAVASTATIN. [Suspect]
     Active Substance: PRAVASTATIN
     Indication: BLOOD CHOLESTEROL INCREASED
     Dosage: 40 MILLIGRAM, QD (40 MG, QD PM QHS)
     Route: 048

REACTIONS (4)
  - Loss of consciousness [Fatal]
  - Incorrect route of product administration [Unknown]
  - Pneumonia [Fatal]
  - Multiple organ dysfunction syndrome [Fatal]

NARRATIVE: CASE EVENT DATE: 2018
